FAERS Safety Report 9894651 (Version 2)
Quarter: 2014Q2

REPORT INFORMATION
  Report Type: Spontaneous
  Country: US (occurrence: US)
  Receive Date: 20140213
  Receipt Date: 20140620
  Transmission Date: 20141212
  Serious: Yes (Hospitalization, Other)
  Sender: FDA-Public Use
  Company Number: US-009507513-1402USA005918

PATIENT
  Sex: Female

DRUGS (1)
  1. NUVARING [Suspect]
     Indication: CONTRACEPTION
     Dosage: UNK
     Route: 067
     Dates: end: 20120720

REACTIONS (10)
  - Pulmonary embolism [Recovering/Resolving]
  - Deep vein thrombosis [Recovering/Resolving]
  - Migraine [Not Recovered/Not Resolved]
  - Nasal septal operation [Unknown]
  - Nasal septum deviation [Unknown]
  - Dental implantation [Unknown]
  - Bronchitis [Unknown]
  - Tonsillectomy [Unknown]
  - Cervical vertebral fracture [Unknown]
  - Joint injury [Unknown]
